FAERS Safety Report 17415544 (Version 1)
Quarter: 2020Q1

REPORT INFORMATION
  Report Type: Spontaneous
  Country: TR (occurrence: TR)
  Receive Date: 20200213
  Receipt Date: 20200213
  Transmission Date: 20200409
  Serious: Yes (Other)
  Sender: FDA-Public Use
  Company Number: NVSC2020TR036369

PATIENT
  Age: 44 Year
  Sex: Female

DRUGS (1)
  1. VERXANT [Suspect]
     Active Substance: SECUKINUMAB
     Indication: PRODUCT USED FOR UNKNOWN INDICATION
     Dosage: 300 MG, QMO
     Route: 058
     Dates: start: 20180928, end: 20200206

REACTIONS (1)
  - Breast mass [Not Recovered/Not Resolved]
